FAERS Safety Report 4551187-1 (Version None)
Quarter: 2005Q1

REPORT INFORMATION
  Report Type: 
  Country: None (occurrence: None)
  Receive Date: 20050106
  Receipt Date: 20041221
  Transmission Date: 20050727
  Serious: Yes (Hospitalization, Other)
  Sender: FDA-Public Use
  Company Number: L04-ITA-08038-01

PATIENT
  Age: 23 Year
  Sex: Male

DRUGS (4)
  1. CITALOPRAM [Suspect]
     Indication: SCHIZOPHRENIA
     Dosage: 100 MG QD
  2. CITALOPRAM [Suspect]
     Indication: SCHIZOPHRENIA
     Dosage: 20 MG QD
     Route: 048
  3. CITALOPRAM [Suspect]
     Indication: SCHIZOPHRENIA
     Route: 048
  4. LORAZEPAM [Concomitant]

REACTIONS (11)
  - ABNORMAL BEHAVIOUR [None]
  - AGGRESSION [None]
  - ANXIETY [None]
  - DYSPHORIA [None]
  - FEELING ABNORMAL [None]
  - IMPULSIVE BEHAVIOUR [None]
  - INJURY [None]
  - MOOD ALTERED [None]
  - PARANOIA [None]
  - PRESCRIBED OVERDOSE [None]
  - RESTLESSNESS [None]
